FAERS Safety Report 7650169-0 (Version None)
Quarter: 2011Q3

REPORT INFORMATION
  Report Type: 
  Country: None (occurrence: None)
  Receive Date: 20110719
  Receipt Date: 20110217
  Transmission Date: 20111222
  Serious: Yes (Other)
  Sender: FDA-Public Use
  Company Number: 163-50794-10120458

PATIENT
  Sex: Male

DRUGS (1)
  1. VIDAZA [Suspect]
     Indication: MYELODYSPLASTIC SYNDROME
     Dosage: Q MONTH; DAYS 1-7, SC
     Route: 058
     Dates: start: 20101103, end: 20101212

REACTIONS (1)
  - PYODERMA GANGRENOSUM [None]
